FAERS Safety Report 6502451-8 (Version None)
Quarter: 2009Q4

REPORT INFORMATION
  Report Type: 
  Country: None (occurrence: None)
  Receive Date: 20091214
  Receipt Date: 20091202
  Transmission Date: 20100525
  Serious: Yes (Hospitalization, Other)
  Sender: FDA-Public Use
  Company Number: CLOF-10554

PATIENT
  Age: 51 Year
  Sex: Female

DRUGS (1)
  1. CLOLAR [Suspect]
     Indication: ACUTE MYELOID LEUKAEMIA
     Dosage: INTRAVENOUS
     Route: 042
     Dates: start: 20050101, end: 20050101

REACTIONS (7)
  - DEVICE RELATED INFECTION [None]
  - ENTEROCOCCAL INFECTION [None]
  - FUNGAL INFECTION [None]
  - NEUTROPENIA [None]
  - SEPTIC EMBOLUS [None]
  - STAPHYLOCOCCAL INFECTION [None]
  - VASCULITIS [None]
